FAERS Safety Report 6684354-1 (Version None)
Quarter: 2010Q2

REPORT INFORMATION
  Report Type: 
  Country: None (occurrence: None)
  Receive Date: 20100416
  Receipt Date: 20100405
  Transmission Date: 20101027
  Serious: Yes (Other)
  Sender: FDA-Public Use
  Company Number: BR-PFIZER INC-2010043111

PATIENT
  Age: 24 Year
  Sex: Male
  Weight: 62 kg

DRUGS (1)
  1. XALATAN [Suspect]
     Indication: GLAUCOMA
     Dosage: 1.5 UG, 1X/DAY
     Route: 047
     Dates: start: 20100201

REACTIONS (1)
  - INTRAOCULAR PRESSURE INCREASED [None]
